FAERS Safety Report 9548765 (Version 1)
Quarter: 2013Q3

REPORT INFORMATION
  Report Type: Spontaneous
  Country: US (occurrence: None)
  Receive Date: 20130923
  Receipt Date: 20130923
  Transmission Date: 20140515
  Serious: Yes (Life-Threatening, Hospitalization, Disabling, Other)
  Sender: FDA-Public Use
  Company Number: None

PATIENT
  Age: 37 Year
  Sex: 0

DRUGS (1)
  1. CYMBALTA [Suspect]
     Indication: MAJOR DEPRESSION
     Dosage: 1X60MG; ONCE DAILY
     Route: 048
     Dates: end: 20130919

REACTIONS (36)
  - Drug withdrawal syndrome [None]
  - Dry mouth [None]
  - Hot flush [None]
  - Hyperhidrosis [None]
  - Local swelling [None]
  - Erythema [None]
  - Night sweats [None]
  - Increased tendency to bruise [None]
  - Skin haemorrhage [None]
  - Scar [None]
  - Impaired healing [None]
  - Fatigue [None]
  - Neck pain [None]
  - Back pain [None]
  - Musculoskeletal pain [None]
  - Migraine [None]
  - Joint swelling [None]
  - Myalgia [None]
  - Palpitations [None]
  - Chest pain [None]
  - Benign breast neoplasm [None]
  - Haemorrhagic ovarian cyst [None]
  - Menopause [None]
  - Dizziness [None]
  - Tremor [None]
  - Muscle spasms [None]
  - Muscle twitching [None]
  - Dyspepsia [None]
  - Abdominal distension [None]
  - Constipation [None]
  - Diarrhoea [None]
  - Coordination abnormal [None]
  - Balance disorder [None]
  - Nightmare [None]
  - Suicide attempt [None]
  - Self injurious behaviour [None]
